FAERS Safety Report 5562393-1 (Version None)
Quarter: 2007Q4

REPORT INFORMATION
  Report Type: 
  Country: None (occurrence: None)
  Receive Date: 20071215
  Receipt Date: 20070613
  Transmission Date: 20080405
  Serious: No
  Sender: FDA-Public Use
  Company Number: US-AMGEN-KDL229377

PATIENT

DRUGS (2)
  1. PROCRIT [Suspect]
     Indication: ANAEMIA
  2. ARANESP [Suspect]

REACTIONS (1)
  - RASH [None]
